FAERS Safety Report 21412237 (Version 1)
Quarter: 2022Q4

REPORT INFORMATION
  Report Type: Spontaneous
  Country: US (occurrence: None)
  Receive Date: 20221004
  Receipt Date: 20221004
  Transmission Date: 20230113
  Serious: Yes (Hospitalization)
  Sender: FDA-Public Use
  Company Number: None

PATIENT
  Age: 70 Year
  Sex: Female

DRUGS (1)
  1. TACROLIMUS [Suspect]
     Active Substance: TACROLIMUS
     Indication: Congenital cystic kidney disease
     Dosage: FREQUENCY : TWICE A DAY;?FAKE IWO CAPSULES BY 111OUL11 EVERY MORNING AND LAKE ONE CAPSULE BY MOUTH E
     Route: 048

REACTIONS (2)
  - Renal surgery [None]
  - Adrenal gland operation [None]

NARRATIVE: CASE EVENT DATE: 20220908
